FAERS Safety Report 16274447 (Version 2)
Quarter: 2019Q2

REPORT INFORMATION
  Report Type: Spontaneous
  Country: GB (occurrence: GB)
  Receive Date: 20190504
  Receipt Date: 20190612
  Transmission Date: 20190711
  Serious: Yes (Hospitalization, Other)
  Sender: FDA-Public Use
  Company Number: GB-AUROBINDO-AUR-APL-2019-023994

PATIENT

DRUGS (5)
  1. XOLAIR [Suspect]
     Active Substance: OMALIZUMAB
     Indication: CHRONIC SPONTANEOUS URTICARIA
     Dosage: 300 MILLIGRAM
     Route: 058
     Dates: start: 20190314
  2. RANITIDINE. [Suspect]
     Active Substance: RANITIDINE
     Indication: CHRONIC SPONTANEOUS URTICARIA
     Dosage: UNK UNK, ONCE A DAY,BID
     Route: 048
  3. FEXOFENADINE [Suspect]
     Active Substance: FEXOFENADINE\FEXOFENADINE HYDROCHLORIDE
     Indication: CHRONIC SPONTANEOUS URTICARIA
     Dosage: UNK UNK, ONCE A DAY,TABLET,QID
     Route: 048
  4. XOLAIR [Suspect]
     Active Substance: OMALIZUMAB
     Dosage: 300 MILLIGRAM
     Route: 058
     Dates: start: 20190411
  5. OMALIZUMAB. [Suspect]
     Active Substance: OMALIZUMAB
     Indication: CHRONIC SPONTANEOUS URTICARIA
     Dosage: 300 MILLIGRAM,300 MG, EVERY 4 WEEKS
     Route: 058
     Dates: start: 20190314

REACTIONS (16)
  - Burning sensation [Recovering/Resolving]
  - Angioedema [Recovering/Resolving]
  - Oropharyngeal pain [Not Recovered/Not Resolved]
  - Cough [Recovering/Resolving]
  - Hypotension [Unknown]
  - Malaise [Recovered/Resolved]
  - Vomiting [Recovered/Resolved]
  - Pharyngeal swelling [Recovering/Resolving]
  - Ear pain [Not Recovered/Not Resolved]
  - Chest discomfort [Recovering/Resolving]
  - Urticaria [Unknown]
  - Dyspnoea [Recovering/Resolving]
  - Cyanosis [Recovering/Resolving]
  - Migraine [Not Recovered/Not Resolved]
  - Swollen tongue [Recovering/Resolving]
  - Fatigue [Recovering/Resolving]

NARRATIVE: CASE EVENT DATE: 20190315
